FAERS Safety Report 13017584 (Version 1)
Quarter: 2016Q4

REPORT INFORMATION
  Report Type: Spontaneous
  Country: US (occurrence: US)
  Receive Date: 20161212
  Receipt Date: 20161212
  Transmission Date: 20170207
  Serious: No
  Sender: FDA-Public Use
  Company Number: US-PFIZER INC-2016488019

PATIENT
  Age: 76 Year
  Sex: Male

DRUGS (3)
  1. FENOFIBRATE. [Concomitant]
     Active Substance: FENOFIBRATE
     Dosage: UNK
     Dates: start: 201502
  2. SUTENT [Suspect]
     Active Substance: SUNITINIB MALATE
     Indication: METASTATIC RENAL CELL CARCINOMA
     Dosage: 50 MG, ONCE A DAY
     Dates: start: 201507, end: 201508
  3. ATENOLOL/CHLOR [Concomitant]
     Dosage: UNK
     Dates: start: 201501

REACTIONS (2)
  - Diarrhoea [Unknown]
  - Ageusia [Unknown]
